FAERS Safety Report 5517823-8 (Version None)
Quarter: 2007Q4

REPORT INFORMATION
  Report Type: 
  Country: None (occurrence: None)
  Receive Date: 20071113
  Receipt Date: 20071026
  Transmission Date: 20080405
  Serious: Yes (Hospitalization)
  Sender: FDA-Public Use
  Company Number: 2007VX001491

PATIENT
  Age: 58 Year
  Sex: Female
  Weight: 84.8226 kg

DRUGS (10)
  1. INFERGEN [Suspect]
     Indication: HEPATITIS C
     Dosage: 9 UG;QD; SC
     Route: 058
     Dates: start: 20070117, end: 20070501
  2. RIBAVIRIN [Suspect]
     Indication: HEPATITIS C
     Dosage: 600 MG;QD;PO
     Route: 048
     Dates: start: 20070117
  3. SYNTHROID [Concomitant]
  4. LEXAPRO [Concomitant]
  5. MILK THISTLE [Concomitant]
  6. XANAX [Concomitant]
  7. OXYCODONE HCL [Concomitant]
  8. PROTONIX [Concomitant]
  9. DIAZEPAM [Concomitant]
  10. SYNTHROID [Concomitant]

REACTIONS (38)
  - ABDOMINAL PAIN UPPER [None]
  - ALANINE AMINOTRANSFERASE INCREASED [None]
  - ARTERIOSCLEROSIS [None]
  - ASPARTATE AMINOTRANSFERASE INCREASED [None]
  - BILIRUBIN CONJUGATED INCREASED [None]
  - BLOOD BICARBONATE DECREASED [None]
  - BLOOD BILIRUBIN INCREASED [None]
  - BLOOD CALCIUM DECREASED [None]
  - BLOOD CHLORIDE INCREASED [None]
  - BLOOD GLUCOSE DECREASED [None]
  - BLOOD GLUCOSE INCREASED [None]
  - BLOOD POTASSIUM DECREASED [None]
  - BLOOD THYROID STIMULATING HORMONE INCREASED [None]
  - BLOOD UREA DECREASED [None]
  - COLONIC POLYP [None]
  - DUODENITIS [None]
  - DYSPEPSIA [None]
  - EAR PAIN [None]
  - GASTRITIS EROSIVE [None]
  - HAEMATOCRIT DECREASED [None]
  - HAEMOGLOBIN DECREASED [None]
  - HAEMORRHOIDS [None]
  - HEPATIC CYST [None]
  - IRRITABLE BOWEL SYNDROME [None]
  - LARGE INTESTINAL ULCER [None]
  - LEUKOPENIA [None]
  - LYMPHOCYTE COUNT INCREASED [None]
  - MEAN PLATELET VOLUME INCREASED [None]
  - MUSCLE TWITCHING [None]
  - MYOCARDIAL ISCHAEMIA [None]
  - NEUTROPHIL PERCENTAGE DECREASED [None]
  - OSTEITIS [None]
  - PAIN IN JAW [None]
  - PHARYNGOLARYNGEAL PAIN [None]
  - PLATELET COUNT DECREASED [None]
  - RED BLOOD CELL COUNT DECREASED [None]
  - RED CELL DISTRIBUTION WIDTH INCREASED [None]
  - RENAL CYST [None]
